FAERS Safety Report 18480830 (Version 1)
Quarter: 2020Q4

REPORT INFORMATION
  Report Type: Spontaneous
  Country: US (occurrence: US)
  Receive Date: 20201109
  Receipt Date: 20201109
  Transmission Date: 20210114
  Serious: No
  Sender: FDA-Public Use
  Company Number: None

PATIENT
  Sex: Male

DRUGS (10)
  1. LOSARTAN POT [Concomitant]
     Active Substance: LOSARTAN POTASSIUM
  2. BIKTARVY [Concomitant]
     Active Substance: BICTEGRAVIR SODIUM\EMTRICITABINE\TENOFOVIR ALAFENAMIDE FUMARATE
  3. HYDROXYZ HCL [Concomitant]
     Active Substance: HYDROXYZINE HYDROCHLORIDE
  4. METOPROLOL TARTRATE. [Concomitant]
     Active Substance: METOPROLOL TARTRATE
  5. MOMETASONE [Concomitant]
     Active Substance: MOMETASONE
  6. TYLENOL [Concomitant]
     Active Substance: ACETAMINOPHEN
  7. PREDNISONE. [Concomitant]
     Active Substance: PREDNISONE
  8. REPATHA [Suspect]
     Active Substance: EVOLOCUMAB
     Indication: HYPERLIPIDAEMIA
     Dosage: ?          OTHER FREQUENCY:EVERY 2 WKS;?
     Route: 058
     Dates: start: 20190614
  9. DESONIDE. [Concomitant]
     Active Substance: DESONIDE
  10. VALACYCLOVIR [Concomitant]
     Active Substance: VALACYCLOVIR HYDROCHLORIDE

REACTIONS (1)
  - Rash [None]
